FAERS Safety Report 8459824-6 (Version None)
Quarter: 2012Q2

REPORT INFORMATION
  Report Type: 
  Country: None (occurrence: None)
  Receive Date: 20120622
  Receipt Date: 20120618
  Transmission Date: 20120825
  Serious: No
  Sender: FDA-Public Use
  Company Number: PHHY2011US37867

PATIENT
  Sex: Female

DRUGS (4)
  1. TASIGNA [Suspect]
     Dosage: 450 MG, DAILY
     Route: 048
  2. TASIGNA [Suspect]
     Dosage: 150 MG, DAILY
     Route: 048
  3. TASIGNA [Suspect]
     Dosage: 150 MG, BID
     Route: 048
  4. TASIGNA [Suspect]
     Indication: CHRONIC MYELOID LEUKAEMIA
     Dosage: 300 MG, BID
     Route: 048
     Dates: start: 20110225

REACTIONS (11)
  - OROPHARYNGEAL PAIN [None]
  - SINUSITIS [None]
  - NASAL CONGESTION [None]
  - EYE HAEMORRHAGE [None]
  - SCLERAL HYPERAEMIA [None]
  - RASH PRURITIC [None]
  - PAIN IN EXTREMITY [None]
  - WEIGHT INCREASED [None]
  - SKIN DISORDER [None]
  - VISION BLURRED [None]
  - FATIGUE [None]
